FAERS Safety Report 14761663 (Version 1)
Quarter: 2018Q2

REPORT INFORMATION
  Report Type: Spontaneous
  Country: US (occurrence: US)
  Receive Date: 20180416
  Receipt Date: 20180416
  Transmission Date: 20180711
  Serious: No
  Sender: FDA-Public Use
  Company Number: US-BION-006213

PATIENT
  Sex: Female
  Weight: 73 kg

DRUGS (1)
  1. ALEVE [Suspect]
     Active Substance: NAPROXEN SODIUM
     Indication: PAIN
     Dosage: 1 OR 2 DAY, 3-4 TIMES A WEEK STARTED FROM 8-10 YEARS AGO?ALSO RECEIVED ORAL ALEVE FILM-COATED TABLE
     Route: 048

REACTIONS (5)
  - Expired product administered [Not Recovered/Not Resolved]
  - Incorrect drug administration duration [Not Recovered/Not Resolved]
  - Product physical consistency issue [Unknown]
  - Abdominal discomfort [Recovered/Resolved]
  - Product leakage [Unknown]
